FAERS Safety Report 11879083 (Version 2)
Quarter: 2016Q1

REPORT INFORMATION
  Report Type: Spontaneous
  Country: ES (occurrence: ES)
  Receive Date: 20151230
  Receipt Date: 20160111
  Transmission Date: 20160526
  Serious: Yes (Hospitalization, Other)
  Sender: FDA-Public Use
  Company Number: ES-DSJP-DSE-2015-139895

PATIENT

DRUGS (2)
  1. VALSARTAN. [Suspect]
     Active Substance: VALSARTAN
     Indication: ESSENTIAL HYPERTENSION
     Dosage: UNK
     Dates: start: 201301, end: 201306
  2. OLMESARTAN AND AMLODIPINE [Suspect]
     Active Substance: AMLODIPINE BESYLATE\OLMESARTAN MEDOXOMIL
     Indication: ESSENTIAL HYPERTENSION
     Dosage: UNK
     Route: 048
     Dates: start: 20110401, end: 201301

REACTIONS (5)
  - Malabsorption [Recovered/Resolved]
  - Uveitis [Recovered/Resolved]
  - Episcleritis [Recovered/Resolved]
  - Thrombocytopenia [Recovered/Resolved]
  - Antiphospholipid syndrome [Recovered/Resolved]

NARRATIVE: CASE EVENT DATE: 201110
